FAERS Safety Report 22623655 (Version 1)
Quarter: 2023Q2

REPORT INFORMATION
  Report Type: Spontaneous
  Country: US (occurrence: US)
  Receive Date: 20230621
  Receipt Date: 20230621
  Transmission Date: 20230721
  Serious: No
  Sender: FDA-Public Use
  Company Number: US-SANOFI-01655147

PATIENT
  Age: 78 Year
  Sex: Male

DRUGS (1)
  1. LANTUS SOLOSTAR [Suspect]
     Active Substance: INSULIN GLARGINE
     Indication: Type 2 diabetes mellitus
     Dosage: 12-15 UNITS 1X AND DRUG TREATMENT DURATION:ABOUT A MONTH
     Dates: start: 202305

REACTIONS (2)
  - Product dispensing error [Unknown]
  - Product storage error [Unknown]

NARRATIVE: CASE EVENT DATE: 20230501
